FAERS Safety Report 6194821-5 (Version None)
Quarter: 2009Q2

REPORT INFORMATION
  Report Type: 
  Country: None (occurrence: None)
  Receive Date: 20090519
  Receipt Date: 20090507
  Transmission Date: 20091009
  Serious: Yes (Other)
  Sender: FDA-Public Use
  Company Number: US-PFIZER INC-2009210538

PATIENT
  Sex: Male
  Weight: 86.182 kg

DRUGS (3)
  1. TIKOSYN [Suspect]
     Indication: ARRHYTHMIA
     Dosage: UNK
     Dates: start: 20020101
  2. COUMADIN [Concomitant]
     Dosage: UNK
  3. LIPITOR [Concomitant]
     Indication: BLOOD CHOLESTEROL INCREASED

REACTIONS (1)
  - CALCINOSIS [None]
